FAERS Safety Report 8824897 (Version 3)
Quarter: 2014Q3

REPORT INFORMATION
  Report Type: Report from Study
  Country: US (occurrence: US)
  Receive Date: 20121004
  Receipt Date: 20140919
  Transmission Date: 20150326
  Serious: Yes (Death, Hospitalization, Other)
  Sender: FDA-Public Use
  Company Number: US-ROCHE-1101910

PATIENT
  Age: 70 Year
  Sex: Male

DRUGS (5)
  1. BENADRYL [Concomitant]
     Active Substance: DIPHENHYDRAMINE HYDROCHLORIDE
  2. IVIG [Concomitant]
     Active Substance: HUMAN IMMUNOGLOBULIN G
     Route: 042
     Dates: start: 20001026
  3. DILANTIN [Concomitant]
     Active Substance: PHENYTOIN
     Route: 065
  4. DILANTIN [Concomitant]
     Active Substance: PHENYTOIN
     Route: 065
  5. RITUXAN [Suspect]
     Active Substance: RITUXIMAB
     Indication: CHRONIC LYMPHOCYTIC LEUKAEMIA
     Route: 042
     Dates: start: 20001117

REACTIONS (7)
  - Pulmonary embolism [Fatal]
  - Peripheral swelling [Unknown]
  - Deep vein thrombosis [Unknown]
  - Chills [Recovered/Resolved]
  - Thrombosis [Unknown]
  - Dyspnoea [Recovered/Resolved]
  - Hypertension [Recovered/Resolved]

NARRATIVE: CASE EVENT DATE: 20001117
